FAERS Safety Report 5030416-4 (Version None)
Quarter: 2006Q2

REPORT INFORMATION
  Report Type: 
  Country: None (occurrence: None)
  Receive Date: 20060615
  Receipt Date: 20060612
  Transmission Date: 20061013
  Serious: Yes (Death, Hospitalization, Other)
  Sender: FDA-Public Use
  Company Number: 25629-1

PATIENT
  Age: 36 Year
  Sex: Female
  Weight: 152 kg

DRUGS (1)
  1. DACARBAZINE [Suspect]
     Indication: METASTATIC MALIGNANT MELANOMA
     Dosage: 2510-2530 MG/IV
     Route: 042
     Dates: start: 20060117, end: 20060206

REACTIONS (5)
  - DIARRHOEA [None]
  - DISEASE PROGRESSION [None]
  - MALAISE [None]
  - METASTASES TO STOMACH [None]
  - PANCREATITIS [None]
